FAERS Safety Report 6945567-4 (Version None)
Quarter: 2010Q3

REPORT INFORMATION
  Report Type: 
  Country: None (occurrence: None)
  Receive Date: 20100827
  Receipt Date: 20100817
  Transmission Date: 20110219
  Serious: Yes (Life-Threatening, Hospitalization)
  Sender: FDA-Public Use
  Company Number: GB-PURDUE-USA-2010-0045954

PATIENT
  Age: 75 Year
  Sex: Female

DRUGS (14)
  1. TRAMADOL HCL [Suspect]
     Indication: PAIN
     Dosage: 100 MG, QID
     Route: 048
  2. REVLIMID [Suspect]
     Indication: MULTIPLE MYELOMA
     Dosage: UNK MG, BID
     Route: 048
     Dates: start: 20100630, end: 20100715
  3. ACYCLOVIR SODIUM [Concomitant]
     Indication: MULTIPLE MYELOMA
     Dosage: 20 MG, DAILY
     Route: 048
     Dates: start: 20100630, end: 20100715
  4. ACYCLOVIR SODIUM [Concomitant]
     Indication: ANTIVIRAL PROPHYLAXIS
  5. DEXAMETHASONE [Concomitant]
     Indication: PROPHYLAXIS
     Dosage: 300 MG, DAILY
     Route: 048
     Dates: start: 20100630, end: 20100703
  6. DEXAMETHASONE [Concomitant]
     Indication: MULTIPLE MYELOMA
  7. FRAGMIN                            /01708302/ [Concomitant]
     Indication: ANTIVIRAL PROPHYLAXIS
     Dosage: 400 MG, BID
     Route: 048
     Dates: start: 20100630, end: 20100715
  8. TRAMADOL HCL [Concomitant]
     Dosage: 5000 UNIT, DAILY
     Route: 058
  9. ALLOPURINOL [Concomitant]
     Indication: GOUT
     Dosage: UNK
     Route: 048
     Dates: end: 20100715
  10. ALLOPURINOL [Concomitant]
     Indication: PROPHYLAXIS
  11. COTRIM [Concomitant]
     Indication: PNEUMOCYSTIS JIROVECI PNEUMONIA
     Route: 048
  12. COTRIM [Concomitant]
     Indication: PROPHYLAXIS
  13. RANITIDINE [Concomitant]
  14. FLUCONAZOLE [Concomitant]
     Indication: ANTIFUNGAL PROPHYLAXIS

REACTIONS (1)
  - INAPPROPRIATE ANTIDIURETIC HORMONE SECRETION [None]
